FAERS Safety Report 18222662 (Version 1)
Quarter: 2020Q3

REPORT INFORMATION
  Report Type: Spontaneous
  Country: US (occurrence: US)
  Receive Date: 20200831
  Receipt Date: 20200831
  Transmission Date: 20201103
  Serious: Yes (Hospitalization)
  Sender: FDA-Public Use
  Company Number: None

PATIENT
  Age: 68 Year
  Sex: Female
  Weight: 90.72 kg

DRUGS (13)
  1. DILTIAZIN [Concomitant]
  2. GABAPENTIN. [Concomitant]
     Active Substance: GABAPENTIN
  3. BIOTIN [Concomitant]
     Active Substance: BIOTIN
  4. NP THYROID [Suspect]
     Active Substance: LEVOTHYROXINE\LIOTHYRONINE
     Indication: HYPOTHYROIDISM
     Dosage: ?          QUANTITY:1 PER DAY;OTHER FREQUENCY:DAILY IN AM;?
     Route: 048
  5. EUTHROX [Concomitant]
     Active Substance: LEVOTHYROXINE SODIUM
  6. VITAMIN D3 [Concomitant]
     Active Substance: CHOLECALCIFEROL
  7. COENZYME Q10 [Concomitant]
     Active Substance: DIETARY SUPPLEMENT\UBIDECARENONE
  8. PANTAPRAZOLE [Concomitant]
     Active Substance: PANTOPRAZOLE SODIUM
  9. DOFECTILIDE [Concomitant]
  10. ELIQUIS [Concomitant]
     Active Substance: APIXABAN
  11. ALPRAZOLOE [Concomitant]
  12. EXEMESTANE. [Concomitant]
     Active Substance: EXEMESTANE
  13. OSTEOBI FLEX [Concomitant]

REACTIONS (4)
  - Atrial fibrillation [None]
  - Atrial flutter [None]
  - Recalled product administered [None]
  - Breast cancer [None]

NARRATIVE: CASE EVENT DATE: 20200123
